FAERS Safety Report 7513577-4 (Version None)
Quarter: 2011Q2

REPORT INFORMATION
  Report Type: 
  Country: None (occurrence: None)
  Receive Date: 20110531
  Receipt Date: 20110518
  Transmission Date: 20111010
  Serious: Yes (Life-Threatening, Hospitalization)
  Sender: FDA-Public Use
  Company Number: ES-MYLANLABS-2011S1010556

PATIENT
  Age: 19 Year
  Sex: Male

DRUGS (1)
  1. KETAMINE HCL [Suspect]
     Indication: SUBSTANCE USE
     Dosage: 100-200ML
     Route: 048

REACTIONS (5)
  - BRADYCARDIA [None]
  - RESPIRATORY FAILURE [None]
  - OVERDOSE [None]
  - LOSS OF CONSCIOUSNESS [None]
  - HYPOTENSION [None]
